FAERS Safety Report 5572265-4 (Version None)
Quarter: 2007Q4

REPORT INFORMATION
  Report Type: 
  Country: None (occurrence: None)
  Receive Date: 20071219
  Receipt Date: 20071210
  Transmission Date: 20080405
  Serious: Yes (Hospitalization)
  Sender: FDA-Public Use
  Company Number: LTI2007A00350

PATIENT
  Age: 69 Year
  Sex: Female

DRUGS (6)
  1. ACTOS [Suspect]
     Indication: TYPE 2 DIABETES MELLITUS
     Dosage: (1 D)
     Route: 048
     Dates: start: 20060701, end: 20070515
  2. ACARBOSE [Concomitant]
  3. ATENOLOL [Concomitant]
  4. KARDEGIC (ACETYLSALICYLIC LYSINE) [Concomitant]
  5. AMARYL [Concomitant]
  6. ATORVASTATIN CALCIUM [Concomitant]

REACTIONS (3)
  - BLADDER CANCER [None]
  - HAEMATURIA [None]
  - RENAL DISORDER [None]
